FAERS Safety Report 4888419-6 (Version None)
Quarter: 2006Q1

REPORT INFORMATION
  Report Type: 
  Country: None (occurrence: None)
  Receive Date: 20060119
  Receipt Date: 20060119
  Transmission Date: 20060701
  Serious: No
  Sender: FDA-Public Use
  Company Number: None

PATIENT
  Sex: Female

DRUGS (2)
  1. SINGULAIR [Suspect]
     Indication: COUGH
     Dosage: .5 AT NIGHT
  2. SINGULAIR [Suspect]
     Indication: MULTIPLE ALLERGIES
     Dosage: .5 AT NIGHT

REACTIONS (1)
  - SLEEP TERROR [None]
